FAERS Safety Report 9751763 (Version 2)
Quarter: 2014Q1

REPORT INFORMATION
  Report Type: Spontaneous
  Country: US (occurrence: US)
  Receive Date: 20131213
  Receipt Date: 20140306
  Transmission Date: 20141002
  Serious: No
  Sender: FDA-Public Use
  Company Number: US-BIOGENIDEC-2013BI117315

PATIENT
  Age: 51 Year
  Sex: Female

DRUGS (2)
  1. TYSABRI [Suspect]
     Indication: MULTIPLE SCLEROSIS
     Route: 042
     Dates: start: 20130617
  2. AVONEX [Concomitant]
     Indication: MULTIPLE SCLEROSIS
     Route: 030
     Dates: start: 199811, end: 2003

REACTIONS (7)
  - Fall [Recovered/Resolved]
  - Back pain [Not Recovered/Not Resolved]
  - Muscle tightness [Recovered/Resolved]
  - Peroneal nerve palsy [Not Recovered/Not Resolved]
  - Insomnia [Unknown]
  - Constipation [Recovered/Resolved]
  - Fatigue [Recovered/Resolved]
